FAERS Safety Report 12722436 (Version 1)
Quarter: 2016Q3

REPORT INFORMATION
  Report Type: Other
  Country: US (occurrence: US)
  Receive Date: 20160907
  Receipt Date: 20160907
  Transmission Date: 20161109
  Serious: No
  Sender: FDA-Public Use
  Company Number: US-COL_22742_2016

PATIENT
  Sex: Female

DRUGS (1)
  1. COLGATE TOTAL WHITENING [Suspect]
     Active Substance: SODIUM FLUORIDE\TRICLOSAN
     Indication: PRODUCT USED FOR UNKNOWN INDICATION
     Dosage: COVERED HALF THE HEAD OF THE TOOTHBRUSH/OD OR BID/
     Route: 048
     Dates: end: 20160420

REACTIONS (3)
  - Oral discomfort [Not Recovered/Not Resolved]
  - Lip discolouration [Not Recovered/Not Resolved]
  - Oral discomfort [None]
